FAERS Safety Report 8504166-3 (Version None)
Quarter: 2012Q3

REPORT INFORMATION
  Report Type: 
  Country: None (occurrence: None)
  Receive Date: 20120711
  Receipt Date: 20120702
  Transmission Date: 20120928
  Serious: Yes (Death, Hospitalization, Other)
  Sender: FDA-Public Use
  Company Number: US-009507513-2012SP006668

PATIENT

DRUGS (1)
  1. NUVARING [Suspect]
     Dosage: UNK
     Dates: start: 20040324, end: 20060910

REACTIONS (7)
  - PULMONARY EMBOLISM [None]
  - HEAD INJURY [None]
  - URINARY TRACT INFECTION [None]
  - MUSCLE STRAIN [None]
  - PLEURAL EFFUSION [None]
  - APPENDICITIS [None]
  - EXCORIATION [None]
